FAERS Safety Report 14583297 (Version 1)
Quarter: 2018Q1

REPORT INFORMATION
  Report Type: Spontaneous
  Country: US (occurrence: US)
  Receive Date: 20180228
  Receipt Date: 20180228
  Transmission Date: 20180509
  Serious: Yes (Other)
  Sender: FDA-Public Use
  Company Number: US-BRISTOL-MYERS SQUIBB COMPANY-BMS-2018-015728

PATIENT
  Sex: Male

DRUGS (1)
  1. YERVOY [Suspect]
     Active Substance: IPILIMUMAB
     Indication: MALIGNANT MELANOMA
     Dosage: UNK, Q3MO (EVERY 12 WEEKS)
     Route: 065

REACTIONS (4)
  - Metastases to central nervous system [Unknown]
  - Adrenal insufficiency [Unknown]
  - Off label use [Unknown]
  - Endocrine test abnormal [Unknown]
